FAERS Safety Report 5750413-0 (Version None)
Quarter: 2008Q2

REPORT INFORMATION
  Report Type: 
  Country: None (occurrence: None)
  Receive Date: 20080523
  Receipt Date: 20080523
  Transmission Date: 20081010
  Serious: No
  Sender: FDA-Public Use
  Company Number: None

PATIENT
  Age: 76 Year
  Sex: Female
  Weight: 79.3795 kg

DRUGS (1)
  1. LEVAQUIN [Suspect]
     Indication: SINUSITIS
     Dosage: 1 TABLET BY MOUTH DAILY PO
     Route: 048
     Dates: start: 20080513, end: 20080517

REACTIONS (3)
  - ARTHROPATHY [None]
  - GAIT DISTURBANCE [None]
  - MOVEMENT DISORDER [None]
